FAERS Safety Report 10782048 (Version 1)
Quarter: 2015Q1

REPORT INFORMATION
  Report Type: Spontaneous
  Country: US (occurrence: None)
  Receive Date: 20150209
  Receipt Date: 20150209
  Transmission Date: 20150721
  Serious: No
  Sender: FDA-Public Use
  Company Number: None

PATIENT
  Age: 8 Year
  Sex: Male

DRUGS (1)
  1. METHYLPHENIDATE 36 MG [Suspect]
     Active Substance: METHYLPHENIDATE
     Indication: ATTENTION DEFICIT/HYPERACTIVITY DISORDER
     Dosage: 1 DOSE
     Route: 048

REACTIONS (5)
  - Agitation [None]
  - Logorrhoea [None]
  - Disturbance in attention [None]
  - Onychophagia [None]
  - Muscle twitching [None]

NARRATIVE: CASE EVENT DATE: 20150203
